FAERS Safety Report 10373765 (Version 1)
Quarter: 2014Q1

REPORT INFORMATION
  Report Type: Spontaneous
  Country: US (occurrence: None)
  Receive Date: 20140306
  Receipt Date: 20140306
  Transmission Date: 20141002
  Serious: Yes (Hospitalization, Other)
  Sender: FDA-Public Use
  Company Number: 163-21880-13051273

PATIENT
  Age: 82 Year
  Sex: Female

DRUGS (10)
  1. REVLIMID (LENALIDOMIDE) (5 MILLIGRAM, CAPSULES) [Suspect]
     Indication: MYELODYSPLASTIC SYNDROME
     Route: 048
     Dates: start: 20110112
  2. METOPROLOL TARTRATE (METOPROLOL TARTRATE) [Concomitant]
  3. ASA (ACETYLSALICYLE ACID) [Concomitant]
  4. B12-ACTIVE (CYANOCOBALAMIN) [Concomitant]
  5. CIPRO (CIPROFLOXACIN) [Concomitant]
  6. CRANBERRY EXTRACT VACCINIUM OXYCOCCUS FRUIT EXTRACT) [Concomitant]
  7. DOXEPIN HCL (DOXEPIN HYDROCHLORIDE) [Concomitant]
  8. FOLIC ACID (FOLIC ACID) [Concomitant]
  9. IMODIUM A-D (LOPERAMIDE HYDROCLORIDE) [Concomitant]
  10. LEVAPRO (ESCITALOPRAM OXALATE) [Concomitant]

REACTIONS (1)
  - Hip fracture [None]
